FAERS Safety Report 21230544 (Version 2)
Quarter: 2022Q3

REPORT INFORMATION
  Report Type: Report from Study
  Country: US (occurrence: US)
  Receive Date: 20220818
  Receipt Date: 20220916
  Transmission Date: 20221026
  Serious: Yes (Hospitalization, Other)
  Sender: FDA-Public Use
  Company Number: US-BRISTOL-MYERS SQUIBB COMPANY-2022-059283

PATIENT
  Age: 64 Year
  Sex: Male
  Weight: 79.378 kg

DRUGS (5)
  1. POMALYST [Suspect]
     Active Substance: POMALIDOMIDE
     Indication: Plasma cell myeloma
     Dosage: DAILY 21 DAYS
     Route: 048
     Dates: start: 20210616
  2. POMALYST [Suspect]
     Active Substance: POMALIDOMIDE
     Indication: Product used for unknown indication
     Dosage: DAILY 21 DAYS
     Route: 048
     Dates: start: 20210616
  3. POMALYST [Suspect]
     Active Substance: POMALIDOMIDE
     Dosage: 21 OUT OF 28DAYS
     Route: 048
     Dates: start: 20210616
  4. ZARXIO [Concomitant]
     Active Substance: FILGRASTIM-SNDZ
     Indication: Product used for unknown indication
     Route: 065
  5. DEXAMETHASONE [Concomitant]
     Active Substance: DEXAMETHASONE
     Indication: Product used for unknown indication
     Route: 065

REACTIONS (5)
  - Sinusitis [Recovered/Resolved]
  - Posterior reversible encephalopathy syndrome [Unknown]
  - Blood pressure increased [Unknown]
  - Ear infection [Recovered/Resolved]
  - Rash [Unknown]

NARRATIVE: CASE EVENT DATE: 20220601
